FAERS Safety Report 7292709-X (Version None)
Quarter: 2011Q1

REPORT INFORMATION
  Report Type: 
  Country: None (occurrence: None)
  Receive Date: 20110215
  Receipt Date: 20110204
  Transmission Date: 20110831
  Serious: Yes (Hospitalization)
  Sender: FDA-Public Use
  Company Number: US-JNJFOC-20110202415

PATIENT
  Sex: Male
  Weight: 31.9 kg

DRUGS (6)
  1. VITAMIN D [Concomitant]
  2. REMICADE [Suspect]
     Indication: INFLAMMATORY BOWEL DISEASE
     Route: 042
  3. MULTI-VITAMINS [Concomitant]
  4. PREVACID [Concomitant]
  5. IRON SUPPLEMENT [Concomitant]
  6. LORATADINE [Concomitant]

REACTIONS (1)
  - COLECTOMY [None]
